FAERS Safety Report 5788625-2 (Version None)
Quarter: 2008Q2

REPORT INFORMATION
  Report Type: 
  Country: None (occurrence: None)
  Receive Date: 20080618
  Receipt Date: 20080314
  Transmission Date: 20081010
  Serious: Yes (Hospitalization)
  Sender: FDA-Public Use
  Company Number: 200810012US

PATIENT
  Age: 28 Year
  Sex: Female

DRUGS (1)
  1. LANTUS [Suspect]
     Dosage: 24 U QPM INJ
     Dates: start: 20071214

REACTIONS (2)
  - BLOOD GLUCOSE INCREASED [None]
  - DRUG INEFFECTIVE [None]
